FAERS Safety Report 9710973 (Version 1)
Quarter: 2013Q4

REPORT INFORMATION
  Report Type: Spontaneous
  Country: US (occurrence: US)
  Receive Date: 20131126
  Receipt Date: 20131126
  Transmission Date: 20140711
  Serious: No
  Sender: FDA-Public Use
  Company Number: US-BRISTOL-MYERS SQUIBB COMPANY-19083328

PATIENT
  Age: 56 Year
  Sex: Female
  Weight: 112.47 kg

DRUGS (2)
  1. BYETTA PEN DISPOSABLE [Suspect]
     Indication: TYPE 2 DIABETES MELLITUS
     Dosage: BYETTA 5MCG PEN AND DID SO BID FOR 1 MONTH.
     Dates: start: 20130618
  2. METFORMIN [Concomitant]

REACTIONS (1)
  - Injection site pain [Unknown]
